FAERS Safety Report 26071783 (Version 1)
Quarter: 2025Q4

REPORT INFORMATION
  Report Type: Spontaneous
  Country: US (occurrence: US)
  Receive Date: 20251120
  Receipt Date: 20251120
  Transmission Date: 20260118
  Serious: No
  Sender: ALEXION PHARMACEUTICALS
  Company Number: US-AstraZeneca-CH-00993231A

PATIENT

DRUGS (1)
  1. BREZTRI [Suspect]
     Active Substance: BUDESONIDE\FORMOTEROL\GLYCOPYRROLATE
     Route: 065

REACTIONS (6)
  - Memory impairment [Unknown]
  - Product use issue [Unknown]
  - Product dose omission issue [Unknown]
  - Dyspnoea [Unknown]
  - Lung disorder [Unknown]
  - Asthma [Unknown]
